FAERS Safety Report 7404400-7 (Version None)
Quarter: 2011Q2

REPORT INFORMATION
  Report Type: 
  Country: None (occurrence: None)
  Receive Date: 20110408
  Receipt Date: 20110401
  Transmission Date: 20111010
  Serious: Yes (Hospitalization)
  Sender: FDA-Public Use
  Company Number: US-SANOFI-AVENTIS-2011SA020370

PATIENT
  Sex: Male

DRUGS (1)
  1. PLAVIX [Suspect]
     Indication: STENT PLACEMENT
     Route: 065
     Dates: start: 20060101

REACTIONS (5)
  - FALL [None]
  - PAIN [None]
  - JOINT INJURY [None]
  - ASTHENIA [None]
  - MYOCARDIAL INFARCTION [None]
